FAERS Safety Report 8283959-4 (Version None)
Quarter: 2012Q2

REPORT INFORMATION
  Report Type: 
  Country: None (occurrence: None)
  Receive Date: 20120413
  Receipt Date: 20110513
  Transmission Date: 20120825
  Serious: No
  Sender: FDA-Public Use
  Company Number: US-ASTRAZENECA-2011SE29395

PATIENT
  Age: 52 Year
  Sex: Male
  Weight: 108.4 kg

DRUGS (3)
  1. HIGH BLOOD PRESSURE MEDICATION [Concomitant]
  2. NEXIUM [Suspect]
     Indication: GASTRIC ULCER
     Route: 048
     Dates: start: 20070101, end: 20110301
  3. NEXIUM [Suspect]
     Indication: GASTROOESOPHAGEAL REFLUX DISEASE
     Route: 048
     Dates: start: 20070101, end: 20110301

REACTIONS (2)
  - HEADACHE [None]
  - DRUG DOSE OMISSION [None]
